FAERS Safety Report 4784192-0 (Version None)
Quarter: 2005Q3

REPORT INFORMATION
  Report Type: 
  Country: None (occurrence: None)
  Receive Date: 20050928
  Receipt Date: 20050916
  Transmission Date: 20060218
  Serious: Yes (Life-Threatening, Other)
  Sender: FDA-Public Use
  Company Number: 2005-DE-03787GD

PATIENT
  Age: 22 Year
  Sex: Male

DRUGS (3)
  1. SALBUTAMOL (SALBUTAMOL) [Suspect]
     Indication: ASTHMA
  2. RIPPED FORCE [Suspect]
     Dosage: 1-3 BOTTLES PER WEEK, PO
     Route: 048
  3. THEOPHYLLINE [Suspect]
     Indication: ASTHMA

REACTIONS (5)
  - ANOXIC ENCEPHALOPATHY [None]
  - CARDIAC ARREST [None]
  - CONVULSION [None]
  - DRUG SCREEN POSITIVE [None]
  - PHARMACEUTICAL PRODUCT COMPLAINT [None]
